FAERS Safety Report 9647673 (Version 1)
Quarter: 2013Q4

REPORT INFORMATION
  Report Type: Spontaneous
  Country: US (occurrence: US)
  Receive Date: 20131028
  Receipt Date: 20131028
  Transmission Date: 20140711
  Serious: No
  Sender: FDA-Public Use
  Company Number: US-009507513-1310USA009607

PATIENT
  Sex: Female

DRUGS (2)
  1. DULERA [Suspect]
     Indication: ASTHMA
     Dosage: INHALER (EA), 1 PUFF, TWICE DAILY
     Route: 055
     Dates: start: 201303
  2. FLUTICASONE [Concomitant]

REACTIONS (3)
  - Wheezing [Recovering/Resolving]
  - Drug dose omission [Unknown]
  - Device malfunction [Unknown]
